FAERS Safety Report 7207066-4 (Version None)
Quarter: 2011Q1

REPORT INFORMATION
  Report Type: 
  Country: None (occurrence: None)
  Receive Date: 20110103
  Receipt Date: 20101222
  Transmission Date: 20110831
  Serious: Yes (Life-Threatening, Hospitalization)
  Sender: FDA-Public Use
  Company Number: B0691499A

PATIENT
  Age: 8 Month
  Sex: Female

DRUGS (1)
  1. AUGMENTIN '125' [Suspect]
     Dosage: 2.5ML THREE TIMES PER DAY
     Route: 065
     Dates: start: 20101126, end: 20101127

REACTIONS (3)
  - ANGIOEDEMA [None]
  - DERMATITIS ALLERGIC [None]
  - URTICARIA [None]
